FAERS Safety Report 6680057-8 (Version None)
Quarter: 2010Q2

REPORT INFORMATION
  Report Type: 
  Country: None (occurrence: None)
  Receive Date: 20100413
  Receipt Date: 20100402
  Transmission Date: 20101027
  Serious: Yes (Death, Congenital Anomaly)
  Sender: FDA-Public Use
  Company Number: DE-RB-004612-10

PATIENT
  Sex: Male

DRUGS (2)
  1. SUBUTEX [Suspect]
     Indication: DRUG EXPOSURE DURING PREGNANCY
     Dosage: DOSING DETAILS UNKNOWN
     Route: 064
     Dates: end: 20100308
  2. SUBOXONE [Suspect]
     Indication: DRUG EXPOSURE DURING PREGNANCY
     Dosage: DOSING DETAILS UNKNOWN
     Route: 064
     Dates: end: 20100308

REACTIONS (12)
  - AMNIOTIC CAVITY INFECTION [None]
  - ASCITES [None]
  - CONGENITAL GENITAL MALFORMATION [None]
  - DRUG EXPOSURE DURING PREGNANCY [None]
  - HYPERKALAEMIA [None]
  - HYPOGLYCAEMIA [None]
  - HYPONATRAEMIA [None]
  - KLINEFELTER'S SYNDROME [None]
  - MULTIPLE CONGENITAL ABNORMALITIES [None]
  - NEONATAL RESPIRATORY DISTRESS SYNDROME [None]
  - PERICARDIAL EFFUSION [None]
  - SUBARACHNOID HAEMORRHAGE [None]
